FAERS Safety Report 17086468 (Version 1)
Quarter: 2019Q4

REPORT INFORMATION
  Report Type: Spontaneous
  Country: US (occurrence: US)
  Receive Date: 20191128
  Receipt Date: 20191128
  Transmission Date: 20200122
  Serious: No
  Sender: FDA-Public Use
  Company Number: US-UCBSA-2018035993

PATIENT
  Sex: Female

DRUGS (1)
  1. VIMPAT [Suspect]
     Active Substance: LACOSAMIDE
     Indication: PRODUCT USED FOR UNKNOWN INDICATION
     Dosage: 50 MG, 2X/DAY (BID)

REACTIONS (7)
  - Fatigue [Unknown]
  - Agitation [Unknown]
  - Depression [Unknown]
  - Somnolence [Unknown]
  - Rash [Unknown]
  - Coordination abnormal [Unknown]
  - Feeling abnormal [Unknown]
